FAERS Safety Report 13850200 (Version 1)
Quarter: 2017Q3

REPORT INFORMATION
  Report Type: Other
  Country: GB (occurrence: US)
  Receive Date: 20170809
  Receipt Date: 20170809
  Transmission Date: 20171127
  Serious: Yes (Other)
  Sender: FDA-Public Use
  Company Number: US-INTERNATIONAL MEDICATION SYSTEMS, LIMITED-2024428

PATIENT
  Sex: Male

DRUGS (1)
  1. LIDOCAINE 2% [Suspect]
     Active Substance: LIDOCAINE
     Indication: WRONG DRUG ADMINISTERED

REACTIONS (2)
  - Generalised tonic-clonic seizure [Recovered/Resolved]
  - Wrong drug administered [Recovered/Resolved]
